FAERS Safety Report 7355264-1 (Version None)
Quarter: 2011Q1

REPORT INFORMATION
  Report Type: 
  Country: None (occurrence: None)
  Receive Date: 20110316
  Receipt Date: 20110314
  Transmission Date: 20110831
  Serious: Yes (Other)
  Sender: FDA-Public Use
  Company Number: US-PFIZER INC-2011056366

PATIENT
  Sex: Female
  Weight: 77.098 kg

DRUGS (4)
  1. GABAPENTIN [Concomitant]
     Dosage: UNK
  2. TOPIRAMATE [Concomitant]
     Indication: MIGRAINE
     Dosage: UNK
  3. CELEBREX [Suspect]
     Indication: ARTHRALGIA
     Dosage: 200 MG, UNK
     Route: 048
     Dates: end: 20081101
  4. CELEBREX [Suspect]
     Indication: ARTHRITIS

REACTIONS (2)
  - INAPPROPRIATE SCHEDULE OF DRUG ADMINISTRATION [None]
  - BRONCHIAL DISORDER [None]
